FAERS Safety Report 4299209-X (Version None)
Quarter: 2004Q1

REPORT INFORMATION
  Report Type: 
  Country: None (occurrence: None)
  Receive Date: 20040217
  Receipt Date: 20040203
  Transmission Date: 20041129
  Serious: No
  Sender: FDA-Public Use
  Company Number: RENA-10836

PATIENT
  Age: 80 Year
  Sex: Male
  Weight: 56 kg

DRUGS (15)
  1. RENAGEL [Suspect]
     Indication: HYPERPHOSPHATAEMIA
     Dosage: 4.5 G DAILY PO
     Route: 048
     Dates: start: 20030807, end: 20030814
  2. RENAGEL [Suspect]
     Indication: HYPERPHOSPHATAEMIA
     Dosage: 3 G DAILY PO
     Route: 048
     Dates: start: 20030708, end: 20030806
  3. CANDESARTAN CILEXETIL [Concomitant]
  4. TICLOPIDINE HYDROCHLORIDE [Concomitant]
  5. AMIODARONE HYDROCHLORIDE [Concomitant]
  6. ETHYL ICOSAPENTATE [Concomitant]
  7. UBIDECARENONE [Concomitant]
  8. NICORANDIL [Concomitant]
  9. TEPRENONE [Concomitant]
  10. WARFARIN [Concomitant]
  11. NIFEDIPINE [Concomitant]
  12. CALCITRIOL [Concomitant]
  13. DROXIDOPA [Concomitant]
  14. ECABET MONOSODIUM [Concomitant]
  15. FAMOTIDINE [Concomitant]

REACTIONS (6)
  - BRADYCARDIA [None]
  - CONDUCTION DISORDER [None]
  - DIALYSIS [None]
  - EMOTIONAL DISTRESS [None]
  - SUPRAVENTRICULAR EXTRASYSTOLES [None]
  - VENTRICULAR EXTRASYSTOLES [None]
